FAERS Safety Report 21890402 (Version 1)
Quarter: 2023Q1

REPORT INFORMATION
  Report Type: Spontaneous
  Country: US (occurrence: None)
  Receive Date: 20230119
  Receipt Date: 20230119
  Transmission Date: 20230417
  Serious: Yes (Hospitalization)
  Sender: FDA-Public Use
  Company Number: None

PATIENT
  Age: 54 Year
  Sex: Female

DRUGS (2)
  1. TYLENOL PM [Suspect]
     Active Substance: ACETAMINOPHEN\DIPHENHYDRAMINE
  2. TEMAZEPAM [Suspect]
     Active Substance: TEMAZEPAM

REACTIONS (2)
  - Intentional product misuse [None]
  - Intentional self-injury [None]

NARRATIVE: CASE EVENT DATE: 20221203
